FAERS Safety Report 9296193 (Version 1)
Quarter: 2013Q2

REPORT INFORMATION
  Report Type: Spontaneous
  Country: BR (occurrence: BR)
  Receive Date: 20130517
  Receipt Date: 20130517
  Transmission Date: 20140414
  Serious: Yes (Other)
  Sender: FDA-Public Use
  Company Number: BR-GLAXOSMITHKLINE-A1023784A

PATIENT
  Age: 51 Year
  Sex: Male
  Weight: 75 kg

DRUGS (4)
  1. AVAMYS [Suspect]
     Indication: SINUSITIS
     Dosage: 2SPR AT NIGHT
     Route: 045
     Dates: start: 201212, end: 20130429
  2. DESALEX [Concomitant]
  3. PREDSIM [Concomitant]
  4. NASOCLEAN [Concomitant]

REACTIONS (1)
  - Ocular hypertension [Recovering/Resolving]
